FAERS Safety Report 5925321-2 (Version None)
Quarter: 2008Q4

REPORT INFORMATION
  Report Type: 
  Country: None (occurrence: None)
  Receive Date: 20081021
  Receipt Date: 20081016
  Transmission Date: 20090506
  Serious: Yes (Hospitalization)
  Sender: FDA-Public Use
  Company Number: US-GILEAD-2008-0018594

PATIENT
  Sex: Female
  Weight: 88.076 kg

DRUGS (19)
  1. LETAIRIS [Suspect]
     Indication: PULMONARY ARTERIAL HYPERTENSION
     Route: 048
  2. CALCIUM 500 PLUS D [Concomitant]
  3. REMODULIN [Concomitant]
  4. SYNTHROID [Concomitant]
  5. FERROUS SULFATE [Concomitant]
  6. TYLENOL (CAPLET) [Concomitant]
  7. FUROSEMIDE [Concomitant]
  8. COUMADIN [Concomitant]
  9. LOMOTIL [Concomitant]
  10. K-DUR [Concomitant]
  11. COZAAR [Concomitant]
  12. COREG [Concomitant]
  13. PLAQUENIL [Concomitant]
  14. ZOLOFT [Concomitant]
  15. PREDNISONE TAB [Concomitant]
  16. SIMVASTATIN [Concomitant]
  17. ASPIRIN ER [Concomitant]
  18. ALPRAZOLAM [Concomitant]
  19. DIGOXIN [Concomitant]

REACTIONS (1)
  - CHEST PAIN [None]
